FAERS Safety Report 9455547 (Version 1)
Quarter: 2013Q3

REPORT INFORMATION
  Report Type: Spontaneous
  Country: US (occurrence: US)
  Receive Date: 20130813
  Receipt Date: 20130813
  Transmission Date: 20140515
  Serious: Yes (Other)
  Sender: FDA-Public Use
  Company Number: US-PFIZER INC-2013232873

PATIENT
  Age: 50 Year
  Sex: Female

DRUGS (14)
  1. MORPHINE SULFATE [Suspect]
     Dosage: UNK
  2. BUTRANS [Suspect]
     Indication: PAIN
     Dosage: UNK
     Route: 062
     Dates: start: 20130506, end: 20130712
  3. LIDOCAINE [Concomitant]
  4. PRILOCAINE [Concomitant]
  5. TOPIRAMATE [Concomitant]
  6. MELOXICAM [Concomitant]
  7. HYDROCODONE W/ACETAMINOPHEN [Concomitant]
  8. AMPYRA [Concomitant]
  9. TIZANIDINE HYDROCHLORIDE [Concomitant]
  10. VIIBRYD [Concomitant]
  11. ROBINUL [Concomitant]
  12. BETASERON [Concomitant]
  13. CHONDROITIN/GLUCOSAMINE [Concomitant]
  14. NORCO [Concomitant]

REACTIONS (2)
  - Drug dependence [Unknown]
  - Drug abuse [Unknown]
